FAERS Safety Report 13507337 (Version 1)
Quarter: 2017Q2

REPORT INFORMATION
  Report Type: Spontaneous
  Country: US (occurrence: US)
  Receive Date: 20170502
  Receipt Date: 20170502
  Transmission Date: 20170830
  Serious: Yes (Other)
  Sender: FDA-Public Use
  Company Number: None

PATIENT
  Age: 56 Year
  Sex: Female
  Weight: 67.95 kg

DRUGS (3)
  1. VITAMIN D3 [Concomitant]
     Active Substance: CHOLECALCIFEROL
  2. GAVILYTE - N [Suspect]
     Active Substance: POLYETHYLENE GLYCOL 3350\POTASSIUM CHLORIDE\SODIUM BICARBONATE\SODIUM CHLORIDE
     Indication: COLONOSCOPY
     Dosage: OTHER FREQUENCY:AS DIRECTED;?
     Route: 048
     Dates: start: 20170417, end: 20170417
  3. VITAMIN B12 [Concomitant]
     Active Substance: CYANOCOBALAMIN

REACTIONS (16)
  - Tympanoplasty [None]
  - Neuralgia [None]
  - Vomiting projectile [None]
  - Movement disorder [None]
  - Neck pain [None]
  - Impaired work ability [None]
  - Disorientation [None]
  - Facial paralysis [None]
  - Nausea [None]
  - Confusional state [None]
  - Pain [None]
  - Loss of personal independence in daily activities [None]
  - Retching [None]
  - Tremor [None]
  - Headache [None]
  - Abdominal pain upper [None]

NARRATIVE: CASE EVENT DATE: 20170417
